FAERS Safety Report 4318467-6 (Version None)
Quarter: 2004Q1

REPORT INFORMATION
  Report Type: 
  Country: None (occurrence: None)
  Receive Date: 20040317
  Receipt Date: 20040317
  Transmission Date: 20041129
  Serious: Yes (Other)
  Sender: FDA-Public Use
  Company Number: None

PATIENT
  Age: 36 Year
  Sex: Female
  Weight: 66.6788 kg

DRUGS (1)
  1. VANCOMYCIN [Suspect]
     Indication: ABSCESS
     Dosage: 1.25GM IV
     Route: 042
     Dates: start: 20040217, end: 20040316

REACTIONS (1)
  - RASH GENERALISED [None]
